FAERS Safety Report 19157271 (Version 1)
Quarter: 2021Q2

REPORT INFORMATION
  Report Type: Report from Study
  Country: US (occurrence: US)
  Receive Date: 20210420
  Receipt Date: 20210420
  Transmission Date: 20210717
  Serious: No
  Sender: FDA-Public Use
  Company Number: US-AGIOS-2104US02662

PATIENT

DRUGS (6)
  1. TOPAMAX [Concomitant]
     Active Substance: TOPIRAMATE
  2. TIBSOVO [Suspect]
     Active Substance: IVOSIDENIB
     Indication: BLADDER CANCER
     Dosage: 250 MILLIGRAM, QD
     Dates: start: 20210410, end: 20210411
  3. ATIVAN [Concomitant]
     Active Substance: LORAZEPAM
  4. VALTREX [Concomitant]
     Active Substance: VALACYCLOVIR HYDROCHLORIDE
  5. TIBSOVO [Suspect]
     Active Substance: IVOSIDENIB
     Indication: ANAPLASTIC ASTROCYTOMA
     Dosage: 250 MILLIGRAM, 2 TABLETS (500 MG), QD
     Route: 048
  6. LEXAPRO [Concomitant]
     Active Substance: ESCITALOPRAM OXALATE

REACTIONS (2)
  - Off label use [Unknown]
  - Intentional underdose [Unknown]

NARRATIVE: CASE EVENT DATE: 20210410
